FAERS Safety Report 5425870-X (Version None)
Quarter: 2007Q3

REPORT INFORMATION
  Report Type: 
  Country: None (occurrence: None)
  Receive Date: 20070725
  Receipt Date: 20070111
  Transmission Date: 20080115
  Serious: Yes (Death, Other)
  Sender: FDA-Public Use
  Company Number: USA-2006-0025350

PATIENT
  Age: 16 Year
  Sex: Male
  Weight: 115.2 kg

DRUGS (4)
  1. MORPHINE SULFATE [Suspect]
     Indication: DRUG ABUSER
  2. OXYCODONE HCL [Suspect]
     Indication: DRUG ABUSER
  3. MEPROBAMATE [Suspect]
     Indication: DRUG ABUSER
  4. CANNABIS (CANNIABIS) [Suspect]
     Indication: DRUG ABUSER

REACTIONS (1)
  - MULTIPLE DRUG OVERDOSE ACCIDENTAL [None]
